FAERS Safety Report 6064443-5 (Version None)
Quarter: 2009Q1

REPORT INFORMATION
  Report Type: 
  Country: None (occurrence: None)
  Receive Date: 20090203
  Receipt Date: 20090203
  Transmission Date: 20090719
  Serious: Yes (Other)
  Sender: FDA-Public Use
  Company Number: None

PATIENT
  Age: 75 Year
  Sex: Female
  Weight: 43.0917 kg

DRUGS (2)
  1. BONIVA [Suspect]
     Indication: OSTEOPOROSIS POSTMENOPAUSAL
     Dosage: 150MG 1 PER MONTH
     Dates: start: 20080820, end: 20081120
  2. BONIVA [Suspect]

REACTIONS (3)
  - HEADACHE [None]
  - MYALGIA [None]
  - OESOPHAGEAL PAIN [None]
